FAERS Safety Report 7509944-5 (Version None)
Quarter: 2011Q2

REPORT INFORMATION
  Report Type: 
  Country: None (occurrence: None)
  Receive Date: 20110527
  Receipt Date: 20110516
  Transmission Date: 20111010
  Serious: Yes (Other)
  Sender: FDA-Public Use
  Company Number: US-ASTRAZENECA-2010SE08801

PATIENT
  Age: 76 Year
  Sex: Female

DRUGS (9)
  1. LISINOPRIL [Concomitant]
  2. SYMBICORT [Suspect]
     Dosage: UNKNOWN DOSE ONCE, DAILY
     Route: 055
  3. HYDROCHLOROTHIAZIDE [Concomitant]
  4. ATENOLOL [Concomitant]
  5. VITAMINS [Concomitant]
  6. CALCIUM CARBONATE [Concomitant]
  7. NEXIUM [Suspect]
     Indication: GASTROOESOPHAGEAL REFLUX DISEASE
     Route: 048
     Dates: start: 20010101
  8. LOVASTATIN [Concomitant]
  9. POTASSIUM CHLORIDE [Concomitant]

REACTIONS (14)
  - CEREBROVASCULAR ACCIDENT [None]
  - GASTROOESOPHAGEAL REFLUX DISEASE [None]
  - DIARRHOEA [None]
  - THROAT LESION [None]
  - MYOCARDIAL INFARCTION [None]
  - EMPHYSEMA [None]
  - SURGERY [None]
  - ABDOMINAL DISCOMFORT [None]
  - HYPERTENSION [None]
  - CHRONIC OBSTRUCTIVE PULMONARY DISEASE [None]
  - DRUG DOSE OMISSION [None]
  - DYSPNOEA [None]
  - MEMORY IMPAIRMENT [None]
  - MALAISE [None]
